FAERS Safety Report 6966529-7 (Version None)
Quarter: 2010Q3

REPORT INFORMATION
  Report Type: 
  Country: None (occurrence: None)
  Receive Date: 20100906
  Receipt Date: 20100826
  Transmission Date: 20110219
  Serious: Yes (Other)
  Sender: FDA-Public Use
  Company Number: 2007BI002625

PATIENT
  Age: 27 Year
  Sex: Female
  Weight: 53 kg

DRUGS (3)
  1. AVONEX [Suspect]
     Indication: MULTIPLE SCLEROSIS
     Route: 030
     Dates: start: 20030501, end: 20070201
  2. AVONEX [Suspect]
     Route: 030
     Dates: start: 20070101, end: 20070101
  3. AVONEX [Suspect]
     Route: 030
     Dates: start: 20070101

REACTIONS (6)
  - EAR PAIN [None]
  - HYPERTHYROIDISM [None]
  - INFLUENZA LIKE ILLNESS [None]
  - OROPHARYNGEAL PAIN [None]
  - THYROID CANCER [None]
  - VOMITING [None]
